FAERS Safety Report 8503015-7 (Version None)
Quarter: 2012Q3

REPORT INFORMATION
  Report Type: 
  Country: None (occurrence: None)
  Receive Date: 20120711
  Receipt Date: 20120705
  Transmission Date: 20120928
  Serious: Yes (Death, Other)
  Sender: FDA-Public Use
  Company Number: DE-SANOFI-AVENTIS-2012SA048092

PATIENT
  Sex: Male

DRUGS (3)
  1. CAPECITABINE [Suspect]
     Indication: RECTAL CANCER
     Dosage: 815 MG/M2 BID DAY 1- 33 W/O WEEKENDS + OPTIONAL BOOST
     Route: 048
     Dates: start: 20110214, end: 20110323
  2. OXALIPLATIN [Suspect]
     Indication: RECTAL CANCER
     Dosage: FREQUENCY: 90 MG/M2 I.V. ON DAY 1, 8, 15, 22 AND 99.
     Route: 042
     Dates: start: 20110214, end: 20110314
  3. THERAPEUTIC RADIOPHARMACEUTICALS [Suspect]
     Indication: RECTAL CANCER
     Route: 065
     Dates: start: 20110214, end: 20110323

REACTIONS (4)
  - MULTI-ORGAN FAILURE [None]
  - ACUTE ABDOMEN [None]
  - SPLENIC LESION [None]
  - HAEMOGLOBIN DECREASED [None]
